FAERS Safety Report 7481648-7 (Version None)
Quarter: 2011Q2

REPORT INFORMATION
  Report Type: 
  Country: None (occurrence: None)
  Receive Date: 20110516
  Receipt Date: 20110503
  Transmission Date: 20111010
  Serious: Yes (Hospitalization, Other)
  Sender: FDA-Public Use
  Company Number: US-ELI_LILLY_AND_COMPANY-US201105002139

PATIENT
  Age: 50 Year
  Sex: Female

DRUGS (9)
  1. ZYPREXA [Suspect]
     Indication: BIPOLAR DISORDER
     Dosage: 5 MG, QD
     Dates: start: 19990101
  2. ZYPREXA [Suspect]
     Dosage: 10 MG, QD
     Dates: end: 20100601
  3. FLUOXETINE [Concomitant]
  4. IBUPROFEN [Concomitant]
  5. ZYPREXA [Suspect]
     Dosage: 10 MG, PRN
  6. CLONAZEPAM [Concomitant]
  7. ABILIFY [Concomitant]
  8. TRAZODONE HCL [Concomitant]
  9. VICODIN [Concomitant]

REACTIONS (5)
  - INTERVERTEBRAL DISC PROTRUSION [None]
  - PAIN [None]
  - HYPOAESTHESIA [None]
  - INTENTIONAL DRUG MISUSE [None]
  - WEIGHT INCREASED [None]
